FAERS Safety Report 25973579 (Version 2)
Quarter: 2025Q4

REPORT INFORMATION
  Report Type: Spontaneous
  Country: US (occurrence: US)
  Receive Date: 20251029
  Receipt Date: 20251113
  Transmission Date: 20260117
  Serious: Yes (Other)
  Sender: ALKEM
  Company Number: US-ALKEM LABORATORIES LIMITED-US-ALKEM-2025-11429

PATIENT
  Age: 64 Year
  Sex: Male

DRUGS (5)
  1. LEVETIRACETAM [Suspect]
     Active Substance: LEVETIRACETAM
     Indication: Seizure prophylaxis
     Dosage: 4500 MILLIGRAM
     Route: 042
  2. LEVETIRACETAM [Suspect]
     Active Substance: LEVETIRACETAM
     Dosage: 1 GRAM, BID
     Route: 042
  3. VALIUM [Concomitant]
     Active Substance: DIAZEPAM
     Indication: Seizure
     Dosage: 10 MILLIGRAM
     Route: 042
  4. LORAZEPAM [Concomitant]
     Active Substance: LORAZEPAM
     Indication: Sedation
     Dosage: UNK
     Route: 065
  5. MIDAZOLAM [Concomitant]
     Active Substance: MIDAZOLAM
     Indication: Sedation
     Dosage: UNK
     Route: 065

REACTIONS (1)
  - Rhabdomyolysis [Unknown]
